FAERS Safety Report 12084342 (Version 2)
Quarter: 2016Q4

REPORT INFORMATION
  Report Type: Spontaneous
  Country: US (occurrence: US)
  Receive Date: 20160217
  Receipt Date: 20161020
  Transmission Date: 20170206
  Serious: No
  Sender: FDA-Public Use
  Company Number: US-ACTELION PHARMACEUTICALS US, INC.-A-NJ2016-131399

PATIENT
  Age: 83 Year
  Sex: Male

DRUGS (15)
  1. FISH OIL [Concomitant]
     Active Substance: FISH OIL
  2. NORCO [Concomitant]
     Active Substance: ACETAMINOPHEN\HYDROCODONE BITARTRATE
  3. TOPROL XL [Concomitant]
     Active Substance: METOPROLOL SUCCINATE
  4. ASPIRIN. [Concomitant]
     Active Substance: ASPIRIN
  5. DETROL [Concomitant]
     Active Substance: TOLTERODINE TARTRATE
  6. CELEBREX [Concomitant]
     Active Substance: CELECOXIB
  7. ALLOPURINOL. [Concomitant]
     Active Substance: ALLOPURINOL
  8. NEXIUM [Concomitant]
     Active Substance: ESOMEPRAZOLE MAGNESIUM
  9. ZYRTEC [Concomitant]
     Active Substance: CETIRIZINE HYDROCHLORIDE
  10. VALCHLOR [Suspect]
     Active Substance: MECHLORETHAMINE
     Indication: MYCOSIS FUNGOIDES
     Dosage: UNK, QD
     Route: 061
     Dates: start: 20150425
  11. ZOCOR [Concomitant]
     Active Substance: SIMVASTATIN
  12. PILOCARPINE. [Concomitant]
     Active Substance: PILOCARPINE
  13. COUMADIN [Concomitant]
     Active Substance: WARFARIN SODIUM
  14. ACIDOPHILUS [Concomitant]
     Active Substance: LACTOBACILLUS ACIDOPHILUS
  15. CALCIUM + VITAMIN D [Concomitant]
     Active Substance: CALCIUM\VITAMIN D

REACTIONS (3)
  - Infection [Not Recovered/Not Resolved]
  - Rash papular [Unknown]
  - Rash macular [Unknown]
